FAERS Safety Report 9477958 (Version 1)
Quarter: 2013Q3

REPORT INFORMATION
  Report Type: Spontaneous
  Country: US (occurrence: None)
  Receive Date: 20130822
  Receipt Date: 20130822
  Transmission Date: 20140515
  Serious: Yes (Other)
  Sender: FDA-Public Use
  Company Number: JPI-P-034434

PATIENT
  Age: 51 Year
  Sex: Female

DRUGS (1)
  1. XYREM (500 MILLIGRAM/MILLILITERS, SOLUTION) (SODIUM OXYBATE) [Suspect]
     Indication: NARCOLEPSY
     Dosage: 6GM (3GM, 2 IN 1 D) ORAL
     Route: 048
     Dates: start: 20090821, end: 2009

REACTIONS (2)
  - Hypertension [None]
  - Myasthenia gravis [None]
